FAERS Safety Report 8130197-1 (Version None)
Quarter: 2012Q1

REPORT INFORMATION
  Report Type: 
  Country: None (occurrence: None)
  Receive Date: 20120210
  Receipt Date: 20120201
  Transmission Date: 20120608
  Serious: Yes (Hospitalization, Other)
  Sender: FDA-Public Use
  Company Number: PHHY2011CA77003

PATIENT
  Sex: Female

DRUGS (7)
  1. PANTOPRAZOLE [Concomitant]
     Dosage: 40 MG, BID
  2. ASPIRIN [Concomitant]
  3. SANDOSTATIN [Suspect]
     Indication: POST GASTRIC SURGERY SYNDROME
     Route: 058
     Dates: start: 20060101
  4. SANDOSTATIN LAR [Suspect]
     Dates: start: 20110911
  5. METOCLOPRAMIDE [Concomitant]
  6. PLAVIX [Concomitant]
  7. SANDOSTATIN LAR [Suspect]
     Indication: POST GASTRIC SURGERY SYNDROME
     Dosage: 20 MG, QMO
     Route: 030
     Dates: start: 20110816

REACTIONS (9)
  - DYSPNOEA [None]
  - FALL [None]
  - INJECTION SITE PAIN [None]
  - CIRCULATORY COLLAPSE [None]
  - MALAISE [None]
  - ABDOMINAL DISCOMFORT [None]
  - INJECTION SITE SWELLING [None]
  - RENAL DISORDER [None]
  - SYNCOPE [None]
